FAERS Safety Report 8836934 (Version 1)
Quarter: 2012Q4

REPORT INFORMATION
  Report Type: 
  Country: FR (occurrence: FR)
  Receive Date: 20121011
  Receipt Date: 20121011
  Transmission Date: 20130627
  Serious: Yes (Death)
  Sender: FDA-Public Use
  Company Number: FR-AMGEN-FRASP2012064469

PATIENT
  Age: 82 Year
  Sex: Male

DRUGS (5)
  1. NEUPOGEN [Suspect]
     Indication: LEUKOPENIA
     Dosage: UNK
     Route: 058
     Dates: start: 201204, end: 201204
  2. PRINZIDE [Concomitant]
  3. TAHOR [Concomitant]
  4. GLIVEC [Concomitant]
     Indication: CHRONIC MYELOID LEUKAEMIA
     Dosage: 400 mg, UNK
     Route: 048
     Dates: start: 20120229, end: 20120413
  5. AUGMENTIN                          /00756801/ [Concomitant]
     Indication: DYSPNOEA

REACTIONS (1)
  - Lung disorder [Fatal]
